FAERS Safety Report 7034401-2 (Version None)
Quarter: 2010Q4

REPORT INFORMATION
  Report Type: 
  Country: None (occurrence: None)
  Receive Date: 20101008
  Receipt Date: 20100927
  Transmission Date: 20110411
  Serious: Yes (Other)
  Sender: FDA-Public Use
  Company Number: PHHY2010FR64760

PATIENT
  Sex: Male

DRUGS (4)
  1. VOLTAREN [Suspect]
     Indication: OSTEOARTHRITIS
     Dosage: 100 MG, QD
     Route: 048
     Dates: end: 20100715
  2. ALLOPUR [Concomitant]
     Indication: GOUT
     Dosage: 300 MG, QD
     Route: 048
     Dates: end: 20100715
  3. LEVOTHYROXINE SODIUM [Concomitant]
     Indication: HYPOTHYROIDISM
     Dosage: 50 UG, QD
     Route: 048
     Dates: end: 20100715
  4. TARDYFERON [Concomitant]
     Indication: IRON DEFICIENCY
     Dosage: 80 MG, QD
     Route: 048
     Dates: end: 20100715

REACTIONS (13)
  - BLOOD CREATININE INCREASED [None]
  - BLOOD PRESSURE DECREASED [None]
  - CHOLESTASIS [None]
  - ENTEROCOCCAL SEPSIS [None]
  - GASTRIC OPERATION [None]
  - HAEMATEMESIS [None]
  - HAEMOGLOBIN DECREASED [None]
  - HELICOBACTER TEST POSITIVE [None]
  - INFLAMMATION [None]
  - PALLOR [None]
  - PYLORIC STENOSIS [None]
  - SCLEROTHERAPY [None]
  - ULCER HAEMORRHAGE [None]
